FAERS Safety Report 24129327 (Version 1)
Quarter: 2024Q3

REPORT INFORMATION
  Report Type: Spontaneous
  Country: US (occurrence: US)
  Receive Date: 20240723
  Receipt Date: 20240723
  Transmission Date: 20241017
  Serious: No
  Sender: ODIN PHARMACEUTICALS
  Company Number: USA--2022-US-000077

PATIENT
  Age: 70 Year
  Sex: Female

DRUGS (4)
  1. LATANOPROST [Suspect]
     Active Substance: LATANOPROST
     Dates: start: 20220121, end: 20220121
  2. Calcium 1200 mg tablets [Concomitant]
     Route: 048
  3. Vitamin D 1000 IU gel capsules [Concomitant]
     Route: 048
  4. Bayer 81 mg aspirin [Concomitant]
     Route: 048

REACTIONS (3)
  - Eye inflammation [Recovered/Resolved]
  - Vision blurred [Recovered/Resolved]
  - Eye pain [Recovered/Resolved]

NARRATIVE: CASE EVENT DATE: 20220121
